FAERS Safety Report 10529089 (Version 3)
Quarter: 2014Q4

REPORT INFORMATION
  Report Type: Report from Study
  Country: US (occurrence: US)
  Receive Date: 20141020
  Receipt Date: 20141118
  Transmission Date: 20150528
  Serious: Yes (Death, Hospitalization)
  Sender: FDA-Public Use
  Company Number: US-ACTELION-A-NJ2014-106577

PATIENT
  Age: 67 Year
  Sex: Female

DRUGS (2)
  1. MACITENTAN [Suspect]
     Active Substance: MACITENTAN
     Indication: PULMONARY ARTERIAL HYPERTENSION
     Dosage: 10 MG, QD
     Route: 048
     Dates: start: 20140604
  2. ADCIRCA [Concomitant]
     Active Substance: TADALAFIL

REACTIONS (5)
  - Fall [Unknown]
  - Radiotherapy [Unknown]
  - Lung cancer metastatic [Fatal]
  - Ankle fracture [Unknown]
  - Metastases to central nervous system [Fatal]

NARRATIVE: CASE EVENT DATE: 20140923
